FAERS Safety Report 4748449-1 (Version None)
Quarter: 2005Q3

REPORT INFORMATION
  Report Type: 
  Country: None (occurrence: None)
  Receive Date: 20050817
  Receipt Date: 20050516
  Transmission Date: 20060218
  Serious: Yes (Other)
  Sender: FDA-Public Use
  Company Number: PHEH2005US04925

PATIENT
  Age: 74 Year
  Sex: Female

DRUGS (4)
  1. GLEEVEC [Suspect]
     Indication: GASTROINTESTINAL STROMAL TUMOUR
     Dosage: 400 MG, QD,ORAL
     Route: 048
  2. PHENERGAN ^AVENTIS PHARMA^(PROZMETHAZINE HYDROCHLORIDE) [Concomitant]
  3. ALLOPURINOL [Concomitant]
  4. GLUCOTROL [Concomitant]

REACTIONS (1)
  - MALIGNANT NEOPLASM PROGRESSION [None]
